FAERS Safety Report 8134253-3 (Version None)
Quarter: 2012Q1

REPORT INFORMATION
  Report Type: 
  Country: None (occurrence: None)
  Receive Date: 20120209
  Receipt Date: 20120202
  Transmission Date: 20120608
  Serious: Yes (Other)
  Sender: FDA-Public Use
  Company Number: DKLU1076100

PATIENT
  Age: 3 Year
  Sex: Male

DRUGS (7)
  1. SABRIL [Suspect]
     Indication: INFANTILE SPASMS
     Dosage: SEE IMAGE
     Route: 048
     Dates: start: 20110701, end: 20110701
  2. SABRIL [Suspect]
     Indication: EPILEPSY
     Dosage: SEE IMAGE
     Route: 048
     Dates: start: 20110701, end: 20110701
  3. SABRIL [Suspect]
     Indication: INFANTILE SPASMS
     Dosage: SEE IMAGE
     Route: 048
     Dates: start: 20100601, end: 20110701
  4. SABRIL [Suspect]
     Indication: EPILEPSY
     Dosage: SEE IMAGE
     Route: 048
     Dates: start: 20100601, end: 20110701
  5. SABRIL [Suspect]
     Indication: INFANTILE SPASMS
     Dosage: SEE IMAGE
     Route: 048
     Dates: start: 20110701, end: 20111201
  6. SABRIL [Suspect]
     Indication: EPILEPSY
     Dosage: SEE IMAGE
     Route: 048
     Dates: start: 20110701, end: 20111201
  7. KLONOPIN [Concomitant]

REACTIONS (3)
  - DRUG INEFFECTIVE [None]
  - INFANTILE SPASMS [None]
  - CONVULSION [None]
